FAERS Safety Report 17193113 (Version 1)
Quarter: 2019Q4

REPORT INFORMATION
  Report Type: Report from Study
  Country: US (occurrence: US)
  Receive Date: 20191223
  Receipt Date: 20191223
  Transmission Date: 20200122
  Serious: Yes (Death)
  Sender: FDA-Public Use
  Company Number: NVSC2019US077233

PATIENT
  Age: 27 Year
  Sex: Female

DRUGS (25)
  1. MEGACE [Concomitant]
     Active Substance: MEGESTROL ACETATE
     Indication: NUTRITIONAL SUPPLEMENTATION
     Dosage: 80 MG, BID
     Route: 048
  2. PENTAMIDINE [Concomitant]
     Active Substance: PENTAMIDINE
     Indication: ANTIFUNGAL PROPHYLAXIS
     Dosage: MONTHLY
     Route: 065
  3. VITAMIN D3 [Concomitant]
     Active Substance: CHOLECALCIFEROL
     Indication: VITAMIN SUPPLEMENTATION
     Dosage: 1000 U, QW
     Route: 048
  4. MIRALAX [Concomitant]
     Active Substance: POLYETHYLENE GLYCOL 3350
     Indication: CONSTIPATION
     Dosage: 17 G, QD
     Route: 048
  5. ZOFRAN [Concomitant]
     Active Substance: ONDANSETRON HYDROCHLORIDE
     Indication: PROPHYLAXIS OF NAUSEA AND VOMITING
     Dosage: 8 MG, Q8H
     Route: 065
  6. ATIVAN [Concomitant]
     Active Substance: LORAZEPAM
     Indication: PROPHYLAXIS OF NAUSEA AND VOMITING
     Dosage: 1 MG, Q6H
     Route: 065
  7. COLACE [Concomitant]
     Active Substance: DOCUSATE SODIUM
     Indication: PROPHYLAXIS
     Dosage: UNK
     Route: 065
  8. BIOTENE NOS [Concomitant]
     Active Substance: CETYLPYRIDINIUM CHLORIDE OR SODIUM FLUORIDE OR SODIUM MONOFLUOROPHOSPHATE OR GLUCOSE OXIDASE\LACTOFERRIN\LACTOPEROXIDASE BOVINE\LYSOZYME
     Indication: PRODUCT USED FOR UNKNOWN INDICATION
     Dosage: UNK
     Route: 065
  9. ZANAFLEX [Concomitant]
     Active Substance: TIZANIDINE HYDROCHLORIDE
     Indication: PRODUCT USED FOR UNKNOWN INDICATION
     Dosage: 4 MG
     Route: 065
  10. KISQALI [Suspect]
     Active Substance: RIBOCICLIB
     Indication: PRODUCT USED FOR UNKNOWN INDICATION
     Dosage: UNK
     Route: 065
  11. MEDROL [Concomitant]
     Active Substance: METHYLPREDNISOLONE
     Indication: PRODUCT USED FOR UNKNOWN INDICATION
     Dosage: 4 MG
     Route: 065
  12. NEULASTA [Concomitant]
     Active Substance: PEGFILGRASTIM
     Indication: OSTEOSARCOMA METASTATIC
     Dosage: EVERY 21 DAYS (ON DAY 8)
     Route: 065
  13. DOCUSATE [Concomitant]
     Active Substance: DOCUSATE
     Indication: CONSTIPATION
     Dosage: 200 MG, QD
     Route: 048
  14. EMLA [Concomitant]
     Active Substance: LIDOCAINE\PRILOCAINE
     Indication: PRODUCT USED FOR UNKNOWN INDICATION
     Dosage: UNK
     Route: 065
  15. SENOKOT [Concomitant]
     Active Substance: SENNOSIDES
     Indication: PROPHYLAXIS
     Dosage: 8.6 MG, BID
     Route: 048
  16. MORPHINE [Concomitant]
     Active Substance: MORPHINE
     Indication: PROCEDURAL PAIN
     Dosage: 5 MG, PRN
     Route: 065
  17. KEPPRA [Concomitant]
     Active Substance: LEVETIRACETAM
     Indication: PRODUCT USED FOR UNKNOWN INDICATION
     Dosage: 250 MG
     Route: 065
     Dates: end: 20190620
  18. MEGACE [Concomitant]
     Active Substance: MEGESTROL ACETATE
     Indication: WEIGHT DECREASED
  19. FLONASE [Concomitant]
     Active Substance: FLUTICASONE PROPIONATE
     Indication: PRODUCT USED FOR UNKNOWN INDICATION
     Dosage: 2 OT, QD (2 SPRAYS INTO EACH SIDE OF NOSE)
     Route: 045
  20. RITALIN [Concomitant]
     Active Substance: METHYLPHENIDATE HYDROCHLORIDE
     Indication: PRODUCT USED FOR UNKNOWN INDICATION
     Dosage: 20 MG
     Route: 065
  21. NYSTATIN. [Concomitant]
     Active Substance: NYSTATIN
     Indication: PROPHYLAXIS
     Route: 065
  22. CELEBREX [Concomitant]
     Active Substance: CELECOXIB
     Indication: NEURALGIA
     Dosage: 100 MG, BID
     Route: 065
  23. ZANTAC [Concomitant]
     Active Substance: RANITIDINE HYDROCHLORIDE
     Indication: GASTROINTESTINAL DISORDER PROPHYLAXIS
     Dosage: 150 MG, BID
     Route: 065
  24. MULTI VITAMIN [Concomitant]
     Active Substance: VITAMINS
     Indication: PRODUCT USED FOR UNKNOWN INDICATION
     Dosage: 1 DF, QD
     Route: 048
  25. TRANSDERM SCOP [Concomitant]
     Active Substance: SCOPOLAMINE
     Indication: PROPHYLAXIS OF NAUSEA AND VOMITING
     Dosage: 1 DF EVERY 3 DAYS
     Route: 003

REACTIONS (1)
  - Death [Fatal]

NARRATIVE: CASE EVENT DATE: 20191002
